FAERS Safety Report 11003471 (Version 1)
Quarter: 2015Q2

REPORT INFORMATION
  Report Type: Spontaneous
  Country: US (occurrence: US)
  Receive Date: 20150409
  Receipt Date: 20150409
  Transmission Date: 20150821
  Serious: No
  Sender: FDA-Public Use
  Company Number: US-ASTRAZENECA-2015SE30839

PATIENT
  Age: 743 Month
  Sex: Male

DRUGS (1)
  1. BYDUREON [Suspect]
     Active Substance: EXENATIDE
     Indication: TYPE 2 DIABETES MELLITUS
     Route: 058
     Dates: start: 20150221

REACTIONS (6)
  - Adverse event [Unknown]
  - Injection site haemorrhage [Unknown]
  - Injection site nodule [Unknown]
  - Injection site pain [Unknown]
  - Discomfort [Unknown]
  - Administration site pain [Unknown]

NARRATIVE: CASE EVENT DATE: 201502
